FAERS Safety Report 4710548-8 (Version None)
Quarter: 2005Q3

REPORT INFORMATION
  Report Type: 
  Country: None (occurrence: None)
  Receive Date: 20050707
  Receipt Date: 20050621
  Transmission Date: 20060218
  Serious: Yes (Other)
  Sender: FDA-Public Use
  Company Number: 2005095639

PATIENT
  Age: 55 Year
  Sex: Female

DRUGS (2)
  1. DOXAZOSIN (DOXAZOSIN) [Suspect]
     Indication: ILL-DEFINED DISORDER
     Dosage: 12 MG (4MG, THREE TIMES DAILY, INTERVAL: DAILY), ORAL
     Route: 048
  2. METOPROLOL SUCCINATE [Concomitant]

REACTIONS (4)
  - ALANINE AMINOTRANSFERASE INCREASED [None]
  - ASPARTATE AMINOTRANSFERASE INCREASED [None]
  - HEPATIC PAIN [None]
  - LIVER DISORDER [None]
